FAERS Safety Report 4532023-6 (Version None)
Quarter: 2004Q4

REPORT INFORMATION
  Report Type: 
  Country: None (occurrence: None)
  Receive Date: 20041220
  Receipt Date: 20031126
  Transmission Date: 20050328
  Serious: Yes (Other)
  Sender: FDA-Public Use
  Company Number: JP-GLAXOSMITHKLINE-B0316164A

PATIENT
  Age: 51 Year
  Sex: Female

DRUGS (4)
  1. TAGAMET [Suspect]
     Indication: GASTRITIS
     Dosage: 600MG PER DAY
     Route: 048
     Dates: start: 20031105, end: 20031106
  2. REBAMIPIDE [Concomitant]
     Indication: GASTRITIS
     Dosage: 300MG PER DAY
     Route: 048
     Dates: start: 20031105, end: 20031106
  3. NAPROXEN [Concomitant]
     Indication: ANTIINFLAMMATORY THERAPY
     Dosage: 300MG PER DAY
     Route: 048
     Dates: start: 20031105, end: 20031106
  4. CLARITHROMYCIN [Concomitant]
     Indication: PNEUMONIA
     Dosage: 400MG PER DAY
     Route: 048
     Dates: start: 20031105, end: 20031106

REACTIONS (1)
  - HAEMORRHAGE SUBCUTANEOUS [None]
